FAERS Safety Report 9490770 (Version 1)
Quarter: 2013Q3

REPORT INFORMATION
  Report Type: Spontaneous
  Country: US (occurrence: None)
  Receive Date: 20130828
  Receipt Date: 20130828
  Transmission Date: 20140515
  Serious: Yes (Other)
  Sender: FDA-Public Use
  Company Number: None

PATIENT
  Age: 82 Year
  Sex: Female
  Weight: 61.24 kg

DRUGS (11)
  1. PROLIA [Suspect]
     Indication: OSTEOPOROSIS
     Dosage: DATE STARTED TAKING:  MID OR LATER IN 2011?
     Dates: start: 2011, end: 201204
  2. HUMULIN N [Concomitant]
  3. SPIRONOLACTONE [Concomitant]
  4. ISOSORBIDE [Concomitant]
  5. SYNTHROID [Concomitant]
  6. ULORIC [Concomitant]
  7. FUROSEMIDE [Concomitant]
  8. TRAMADOL [Concomitant]
  9. BENEDRYL [Concomitant]
  10. CALCIUM W/VIT D [Concomitant]
  11. MAGNESIUM [Concomitant]

REACTIONS (3)
  - Bone disorder [None]
  - Upper limb fracture [None]
  - Pain [None]
